FAERS Safety Report 22298425 (Version 1)
Quarter: 2023Q2

REPORT INFORMATION
  Report Type: Report from Study
  Country: IT (occurrence: IT)
  Receive Date: 20230509
  Receipt Date: 20230509
  Transmission Date: 20230721
  Serious: Yes (Other)
  Sender: FDA-Public Use
  Company Number: None

PATIENT
  Age: 57 Year
  Sex: Female

DRUGS (7)
  1. XANAX [Suspect]
     Active Substance: ALPRAZOLAM
     Indication: Product used for unknown indication
     Dosage: UNK
     Route: 048
     Dates: start: 20230326, end: 20230326
  2. RIVOTRIL [Suspect]
     Active Substance: CLONAZEPAM
     Indication: Product used for unknown indication
     Dosage: UNK
     Route: 048
     Dates: start: 20230326, end: 20230326
  3. BUTYLSCOPOLAMINE BROMIDE [Concomitant]
     Active Substance: BUTYLSCOPOLAMINE BROMIDE
     Dosage: UNK
     Route: 065
  4. TRIAZOLAM [Concomitant]
     Active Substance: TRIAZOLAM
     Dosage: UNK
     Route: 065
  5. AMITRIPTYLINE HYDROCHLORIDE\PERPHENAZINE [Concomitant]
     Active Substance: AMITRIPTYLINE HYDROCHLORIDE\PERPHENAZINE
     Dosage: UNK
     Route: 065
  6. FLUOXETINE HYDROCHLORIDE [Concomitant]
     Active Substance: FLUOXETINE HYDROCHLORIDE
     Dosage: UNK
     Route: 065
  7. BROTIZOLAM [Concomitant]
     Active Substance: BROTIZOLAM
     Dosage: UNK
     Route: 065

REACTIONS (2)
  - Fall [Recovered/Resolved]
  - Drug abuse [Recovered/Resolved]

NARRATIVE: CASE EVENT DATE: 20230326
